FAERS Safety Report 8612321-7 (Version None)
Quarter: 2012Q3

REPORT INFORMATION
  Report Type: 
  Country: None (occurrence: None)
  Receive Date: 20120810
  Receipt Date: 20120810
  Transmission Date: 20120928
  Serious: Yes (Hospitalization)
  Sender: FDA-Public Use
  Company Number: None

PATIENT
  Sex: Female

DRUGS (2)
  1. RIBASPHERE [Suspect]
     Indication: HEPATITIS C
     Dosage: 600 MG BID PO
     Route: 048
     Dates: start: 20120706, end: 20120803
  2. PEGASYS [Suspect]
     Indication: HEPATITIS C
     Dosage: 180 MCG WEEKLY SQ
     Route: 058
     Dates: start: 20120706, end: 20120803

REACTIONS (1)
  - ANAEMIA [None]
